FAERS Safety Report 9385798 (Version 1)
Quarter: 2013Q3

REPORT INFORMATION
  Report Type: Report from Study
  Country: AR (occurrence: AR)
  Receive Date: 20130705
  Receipt Date: 20130705
  Transmission Date: 20140515
  Serious: Yes (Other)
  Sender: FDA-Public Use
  Company Number: PHHY2013AR071348

PATIENT
  Age: 57 Year
  Sex: Male

DRUGS (1)
  1. EXFORGE [Suspect]
     Indication: HYPERTENSION
     Dosage: 1 DF, (80/5 MG) DAILY
     Route: 048

REACTIONS (2)
  - Respiratory failure [Not Recovered/Not Resolved]
  - Asthma [Unknown]
